FAERS Safety Report 5341844-1 (Version None)
Quarter: 2007Q2

REPORT INFORMATION
  Report Type: 
  Country: None (occurrence: None)
  Receive Date: 20070601
  Receipt Date: 20070524
  Transmission Date: 20071010
  Serious: Yes (Hospitalization)
  Sender: FDA-Public Use
  Company Number: US-ELI_LILLY_AND_COMPANY-US200610004833

PATIENT
  Age: 69 Year
  Sex: Male
  Weight: 97.505 kg

DRUGS (4)
  1. BYETTA [Suspect]
     Indication: DIABETES MELLITUS NON-INSULIN-DEPENDENT
     Dosage: 5 UG, 2/D
     Route: 058
     Dates: start: 20060706
  2. AMARYL [Concomitant]
  3. AVANDIA [Concomitant]
     Dates: start: 20060101
  4. GLUCOPHAGE [Concomitant]

REACTIONS (3)
  - DRUG EFFECT DECREASED [None]
  - PROCEDURAL PAIN [None]
  - ROTATOR CUFF REPAIR [None]
